FAERS Safety Report 22948552 (Version 4)
Quarter: 2023Q4

REPORT INFORMATION
  Report Type: Report from Study
  Country: US (occurrence: US)
  Receive Date: 20230915
  Receipt Date: 20231211
  Transmission Date: 20240110
  Serious: Yes (Hospitalization)
  Sender: FDA-Public Use
  Company Number: US-JAZZ PHARMACEUTICALS-2023-US-019016

PATIENT
  Age: 71 Year
  Sex: Male
  Weight: 85.9 kg

DRUGS (8)
  1. LURBINECTEDIN [Suspect]
     Active Substance: LURBINECTEDIN
     Indication: Small cell lung cancer
     Dosage: 3.2 MILLIGRAM/SQ. METER, QD
     Route: 042
     Dates: start: 20230721
  2. LURBINECTEDIN [Suspect]
     Active Substance: LURBINECTEDIN
     Dosage: 2.6 MILLIGRAM/SQ. METER, QD
     Route: 042
     Dates: start: 20230831
  3. ATORVASTATIN [Concomitant]
     Active Substance: ATORVASTATIN
     Dosage: 20 MILLIGRAM, QD
     Route: 048
     Dates: start: 20230725
  4. BENAZEPRIL [Concomitant]
     Active Substance: BENAZEPRIL HYDROCHLORIDE
     Dosage: 10 MILLIGRAM, QD
     Route: 048
     Dates: start: 20230727
  5. FUROSEMIDE [Concomitant]
     Active Substance: FUROSEMIDE
     Dosage: 40 MILLIGRAM, QD
     Route: 048
     Dates: start: 20230727
  6. SACUBITRIL\VALSARTAN [Concomitant]
     Active Substance: SACUBITRIL\VALSARTAN
     Dosage: 24-26 MILLIGRAM, TWICE DAILY
     Route: 048
     Dates: start: 20230802
  7. CARVEDILOL [Concomitant]
     Active Substance: CARVEDILOL
     Dosage: 3.125 MILLIGRAM, BID
     Route: 048
     Dates: start: 20230727
  8. HYDROCODONE BITARTRATE AND ACETAMINOPHEN [Concomitant]
     Active Substance: ACETAMINOPHEN\HYDROCODONE BITARTRATE
     Dosage: 5-325 MILLIGRAM, Q6 HOURS, PRN
     Route: 048
     Dates: start: 20230724

REACTIONS (2)
  - Troponin I increased [Recovering/Resolving]
  - Skin infection [Recovered/Resolved]

NARRATIVE: CASE EVENT DATE: 20230906
